FAERS Safety Report 14815633 (Version 2)
Quarter: 2018Q2

REPORT INFORMATION
  Report Type: Spontaneous
  Country: FR (occurrence: FR)
  Receive Date: 20180426
  Receipt Date: 20180524
  Transmission Date: 20180711
  Serious: Yes (Hospitalization)
  Sender: FDA-Public Use
  Company Number: FR-PFIZER INC-2018166910

PATIENT
  Age: 77 Year
  Sex: Male

DRUGS (1)
  1. NIPENT [Suspect]
     Active Substance: PENTOSTATIN
     Indication: HAIRY CELL LEUKAEMIA RECURRENT
     Dosage: UNK
     Route: 042
     Dates: start: 20150702

REACTIONS (3)
  - Nephritis allergic [Recovering/Resolving]
  - Pancytopenia [Recovered/Resolved]
  - Tubulointerstitial nephritis [Recovering/Resolving]

NARRATIVE: CASE EVENT DATE: 20150716
